FAERS Safety Report 8824883 (Version 2)
Quarter: 2015Q2

REPORT INFORMATION
  Report Type: Report from Study
  Country: US (occurrence: US)
  Receive Date: 20121004
  Receipt Date: 20150422
  Transmission Date: 20150821
  Serious: Yes (Death)
  Sender: FDA-Public Use
  Company Number: US-ROCHE-1134035

PATIENT
  Age: 62 Year
  Sex: Female
  Weight: 84 kg

DRUGS (11)
  1. RITUXAN [Suspect]
     Active Substance: RITUXIMAB
     Indication: LYMPHOMA
     Route: 042
     Dates: start: 20050614
  2. KYTRIL [Concomitant]
     Active Substance: GRANISETRON HYDROCHLORIDE
     Route: 048
  3. ADRIAMYCIN [Concomitant]
     Active Substance: DOXORUBICIN HYDROCHLORIDE
     Route: 042
  4. CYTOXAN [Concomitant]
     Active Substance: CYCLOPHOSPHAMIDE
     Route: 042
  5. HYDROXYDAUNORUBICIN [Concomitant]
     Active Substance: DOXORUBICIN
  6. ONCOVIN [Concomitant]
     Active Substance: VINCRISTINE SULFATE
  7. ZEVALIN [Concomitant]
     Active Substance: IBRITUMOMAB TIUXETAN
     Route: 042
  8. PREDNISONE. [Concomitant]
     Active Substance: PREDNISONE
  9. RITUXAN [Suspect]
     Active Substance: RITUXIMAB
     Route: 042
  10. BENADRYL [Concomitant]
     Active Substance: DIPHENHYDRAMINE HYDROCHLORIDE
     Route: 048
  11. TYLENOL [Concomitant]
     Active Substance: ACETAMINOPHEN
     Route: 048

REACTIONS (29)
  - Oral fungal infection [Unknown]
  - Hypoaesthesia [Unknown]
  - Pyrexia [Unknown]
  - Pain [Unknown]
  - Arthralgia [Unknown]
  - Productive cough [Unknown]
  - Musculoskeletal pain [Unknown]
  - Chest pain [Unknown]
  - Paraesthesia [Unknown]
  - Headache [Unknown]
  - Joint swelling [Unknown]
  - Oral pain [Unknown]
  - Fatigue [Unknown]
  - Nausea [Unknown]
  - Asthenia [Unknown]
  - Petechiae [Unknown]
  - Mucosal inflammation [Unknown]
  - Vulvovaginal mycotic infection [Unknown]
  - Death [Fatal]
  - Dyspnoea exertional [Unknown]
  - Neck pain [Unknown]
  - Vision blurred [Unknown]
  - Contusion [Unknown]
  - Chills [Unknown]
  - Genital discomfort [Unknown]
  - Muscle twitching [Unknown]
  - Oedema peripheral [Unknown]
  - Dry skin [Unknown]
  - Weight decreased [Unknown]

NARRATIVE: CASE EVENT DATE: 20060410
